FAERS Safety Report 24416966 (Version 2)
Quarter: 2024Q4

REPORT INFORMATION
  Report Type: Spontaneous
  Country: DE (occurrence: DE)
  Receive Date: 20241009
  Receipt Date: 20241016
  Transmission Date: 20250115
  Serious: Yes (Other)
  Sender: BAXTER
  Company Number: DE-BAXTER-2024BAX025338

PATIENT
  Age: 57 Year
  Sex: Male

DRUGS (1)
  1. OLIMEL E [Suspect]
     Active Substance: AMINO ACIDS\DEXTROSE\ELECTROLYTES NOS\SOYBEAN OIL
     Indication: Parenteral nutrition
     Dosage: ADMINISTERED AT AN INFUSION RATE OF 40 ML/H VIA HORIZONTAL CVC (CENTRAL VENOUS CATHETER) LOCATED IN
     Route: 042
     Dates: start: 20240922

REACTIONS (4)
  - Cardiac disorder [Unknown]
  - Catheter site swelling [Not Recovered/Not Resolved]
  - Swelling [Not Recovered/Not Resolved]
  - Catheter site extravasation [Not Recovered/Not Resolved]

NARRATIVE: CASE EVENT DATE: 20240923
